FAERS Safety Report 7531679-3 (Version None)
Quarter: 2011Q2

REPORT INFORMATION
  Report Type: 
  Country: None (occurrence: None)
  Receive Date: 20110608
  Receipt Date: 20110524
  Transmission Date: 20111010
  Serious: No
  Sender: FDA-Public Use
  Company Number: US-ROXANE LABORATORIES, INC.-2011-RO-00710RO

PATIENT
  Age: 43 Year
  Sex: Male

DRUGS (1)
  1. ROXICET [Suspect]
     Route: 048
     Dates: start: 20110520

REACTIONS (2)
  - DRUG SCREEN NEGATIVE [None]
  - DRUG INEFFECTIVE [None]
